FAERS Safety Report 15118752 (Version 1)
Quarter: 2018Q3

REPORT INFORMATION
  Report Type: Report from Study
  Country: None (occurrence: BR)
  Receive Date: 20180709
  Receipt Date: 20180709
  Transmission Date: 20181010
  Serious: Yes (Other)
  Sender: FDA-Public Use
  Company Number: BR-ABBVIE-18K-020-2411710-00

PATIENT
  Sex: Female
  Weight: 53 kg

DRUGS (4)
  1. HUMIRA [Suspect]
     Active Substance: ADALIMUMAB
     Indication: COLITIS ULCERATIVE
     Route: 058
     Dates: start: 2004
  2. AZATHIOPRINE. [Concomitant]
     Active Substance: AZATHIOPRINE
     Indication: PROPHYLAXIS
  3. URSACOL [Concomitant]
     Active Substance: URSODIOL
     Indication: CHOLANGITIS SCLEROSING
  4. MELAGRIAO [Concomitant]
     Indication: COUGH

REACTIONS (10)
  - Osteoporosis [Unknown]
  - Biliary tract disorder [Unknown]
  - Anaemia [Recovering/Resolving]
  - Respiratory disorder [Unknown]
  - Therapeutic response unexpected [Unknown]
  - Liver disorder [Unknown]
  - Gallbladder disorder [Unknown]
  - Cough [Recovered/Resolved]
  - Hepatic cirrhosis [Recovered/Resolved]
  - Vitamin D decreased [Not Recovered/Not Resolved]

NARRATIVE: CASE EVENT DATE: 2004
